FAERS Safety Report 7034638-2 (Version None)
Quarter: 2010Q4

REPORT INFORMATION
  Report Type: 
  Country: None (occurrence: None)
  Receive Date: 20101008
  Receipt Date: 20100930
  Transmission Date: 20110411
  Serious: Yes (Death, Life-Threatening, Hospitalization, Other)
  Sender: FDA-Public Use
  Company Number: DE-CELGENEUS-062-21880-10063074

PATIENT
  Age: 71 Year
  Sex: Male

DRUGS (7)
  1. REVLIMID [Suspect]
     Indication: MULTIPLE MYELOMA
     Route: 048
     Dates: start: 20100618, end: 20100628
  2. DEXAMETHASONE [Suspect]
     Indication: MULTIPLE MYELOMA
     Route: 048
     Dates: start: 20100618, end: 20100625
  3. AMLODIPINE [Concomitant]
     Indication: HYPERTENSION
     Route: 048
  4. TARGIN [Concomitant]
     Indication: PAIN
     Route: 048
  5. TEGRETOL [Concomitant]
     Indication: PRODUCT USED FOR UNKNOWN INDICATION
     Route: 048
  6. FRAXIPARIN [Concomitant]
     Indication: PROPHYLAXIS
     Route: 058
  7. NOVALGIN [Concomitant]
     Indication: PAIN
     Route: 048

REACTIONS (4)
  - CARDIOPULMONARY FAILURE [None]
  - PNEUMONIA [None]
  - PYELONEPHRITIS ACUTE [None]
  - SEPSIS [None]
